FAERS Safety Report 9683004 (Version 1)
Quarter: 2013Q4

REPORT INFORMATION
  Report Type: Spontaneous
  Country: US (occurrence: US)
  Receive Date: 20131112
  Receipt Date: 20131112
  Transmission Date: 20140711
  Serious: No
  Sender: FDA-Public Use
  Company Number: US-PFIZER INC-2013317731

PATIENT
  Age: 39 Year
  Sex: Female
  Weight: 65.76 kg

DRUGS (3)
  1. ADVIL [Suspect]
     Indication: HEADACHE
     Dosage: 200 MG, DAILY
     Route: 048
  2. ARMOUR THYROID [Concomitant]
     Indication: THYROID DISORDER
     Dosage: 75 MG, DAILY
  3. SYNTHROID [Concomitant]
     Indication: THYROID DISORDER
     Dosage: 25 MG, DAILY

REACTIONS (1)
  - Local swelling [Unknown]
